FAERS Safety Report 8902870 (Version 1)
Quarter: 2012Q4

REPORT INFORMATION
  Report Type: 
  Country: US (occurrence: US)
  Receive Date: 20121112
  Receipt Date: 20121112
  Transmission Date: 20130627
  Serious: No
  Sender: FDA-Public Use
  Company Number: US-PFIZER INC-2012281068

PATIENT
  Age: 54 Year
  Sex: Female
  Weight: 56.69 kg

DRUGS (2)
  1. NEURONTIN [Suspect]
     Indication: PROCEDURAL PAIN
     Dosage: 300 mg, 3x/day
     Route: 048
     Dates: end: 201209
  2. LYRICA [Suspect]
     Indication: CHRONIC PAIN
     Dosage: 50 mg, 3x/day
     Route: 048
     Dates: start: 20120815

REACTIONS (5)
  - Disturbance in attention [Not Recovered/Not Resolved]
  - Aphasia [Not Recovered/Not Resolved]
  - Memory impairment [Not Recovered/Not Resolved]
  - Malaise [Unknown]
  - Nerve injury [Unknown]
